FAERS Safety Report 9206101 (Version 1)
Quarter: 2013Q1

REPORT INFORMATION
  Report Type: Spontaneous
  Country: US (occurrence: None)
  Receive Date: 20120709
  Receipt Date: 20120709
  Transmission Date: 20140127
  Serious: Yes (Other)
  Sender: FDA-Public Use
  Company Number: PHHY2010US47693

PATIENT
  Age: 53 Year
  Sex: Female
  Weight: 62.6 kg

DRUGS (3)
  1. GLEEVEC [Suspect]
     Indication: LEUKAEMIA
     Route: 048
     Dates: start: 20071019, end: 20090401
  2. FOSAMAX (ALENDRONATE SODIUM) [Concomitant]
  3. MULTIVITAMINS (ASCORBIC ACID, ERGOCALCIFEROL, FLOIC ACID, NICOTINAMIDE,PANTHENOL, RETINOL, RIBOFLAVIN,THIAMINE HYDROCHLORIDE) [Concomitant]

REACTIONS (7)
  - Cataract [None]
  - Muscle spasms [None]
  - Fluid retention [None]
  - Migraine [None]
  - Dry eye [None]
  - Pain [None]
  - Visual impairment [None]
